FAERS Safety Report 15281389 (Version 6)
Quarter: 2018Q4

REPORT INFORMATION
  Report Type: Other
  Country: DE (occurrence: DE)
  Receive Date: 20180815
  Receipt Date: 20181009
  Transmission Date: 20190204
  Serious: Yes (Other)
  Sender: FDA-Public Use
  Company Number: DE-ASTELLAS-2018US036280

PATIENT
  Age: 77 Year
  Sex: Female

DRUGS (7)
  1. ERLOTINIB [Suspect]
     Active Substance: ERLOTINIB
     Indication: ADENOCARCINOMA
  2. ERLOTINIB [Suspect]
     Active Substance: ERLOTINIB
     Indication: LUNG ADENOCARCINOMA
     Dosage: UNK UNK, UNKNOWN FREQ.
     Route: 065
  3. GEFITINIB. [Suspect]
     Active Substance: GEFITINIB
     Indication: METASTASES TO LUNG
  4. GEFITINIB. [Suspect]
     Active Substance: GEFITINIB
     Indication: ADENOCARCINOMA
  5. VINORELBINE [Suspect]
     Active Substance: VINORELBINE\VINORELBINE TARTRATE
     Indication: LUNG ADENOCARCINOMA
     Dosage: UNK, UNKNOWN FREQ.
     Route: 065
  6. GEFITINIB. [Suspect]
     Active Substance: GEFITINIB
     Indication: LUNG ADENOCARCINOMA
     Dosage: UNK UNK, UNKNOWN FREQ.
     Route: 065
  7. ERLOTINIB [Suspect]
     Active Substance: ERLOTINIB
     Indication: METASTASES TO LUNG

REACTIONS (4)
  - Drug resistance [Recovered/Resolved]
  - Squamous cell carcinoma [Not Recovered/Not Resolved]
  - Lung adenocarcinoma [Unknown]
  - Malignant neoplasm progression [Unknown]
